FAERS Safety Report 9648883 (Version 1)
Quarter: 2013Q4

REPORT INFORMATION
  Report Type: Spontaneous
  Country: US (occurrence: None)
  Receive Date: 20131025
  Receipt Date: 20131025
  Transmission Date: 20140711
  Serious: Yes (Life-Threatening, Other)
  Sender: FDA-Public Use
  Company Number: None

PATIENT
  Age: 44 Year
  Sex: Female
  Weight: 84.37 kg

DRUGS (2)
  1. CLONAZEPAM [Suspect]
     Indication: EPILEPSY
     Dosage: 2 OPILLS ONCE DAILY BY MOUTH.
     Dates: start: 20130722, end: 20131012
  2. LEVETIRACETAM [Suspect]
     Indication: EPILEPSY
     Dosage: 1PILL TWICW DAILY BY MOUTH.
     Dates: start: 20130606, end: 20131021

REACTIONS (5)
  - Hostility [None]
  - Anxiety [None]
  - Anger [None]
  - Suicide attempt [None]
  - Incorrect dose administered [None]
